FAERS Safety Report 20201653 (Version 1)
Quarter: 2021Q4

REPORT INFORMATION
  Report Type: Spontaneous
  Country: DE (occurrence: DE)
  Receive Date: 20211217
  Receipt Date: 20211217
  Transmission Date: 20220304
  Serious: Yes (Hospitalization)
  Sender: FDA-Public Use
  Company Number: DE-DCGMA-21190413

PATIENT
  Age: 75 Year
  Sex: Male
  Weight: 73.2 kg

DRUGS (1)
  1. LENALIDOMIDE [Suspect]
     Active Substance: LENALIDOMIDE
     Indication: Plasma cell myeloma
     Dosage: 15 MG
     Route: 048
     Dates: start: 202007, end: 20210510

REACTIONS (3)
  - Burning sensation [Not Recovered/Not Resolved]
  - Dermatitis psoriasiform [Not Recovered/Not Resolved]
  - Pruritus [Not Recovered/Not Resolved]

NARRATIVE: CASE EVENT DATE: 20210301
